FAERS Safety Report 21526627 (Version 4)
Quarter: 2022Q4

REPORT INFORMATION
  Report Type: Spontaneous
  Country: PR (occurrence: PR)
  Receive Date: 20221031
  Receipt Date: 20221206
  Transmission Date: 20230112
  Serious: No
  Sender: FDA-Public Use
  Company Number: PR-PFIZER INC-202201207050

PATIENT
  Age: 14 Year
  Sex: Male
  Weight: 62.6 kg

DRUGS (5)
  1. GENOTROPIN [Suspect]
     Active Substance: SOMATROPIN
     Indication: Craniopharyngioma
     Dosage: 1.8 UNK UNIT, EACH DAY USE DIFFERENT ARM, LEG OR BUTTOCKS, SMALL NEEDLE PUT ON TOP OF PEN
     Route: 051
     Dates: start: 2016
  2. GENOTROPIN [Suspect]
     Active Substance: SOMATROPIN
     Indication: Growth disorder
  3. SYNTHROID [Concomitant]
     Active Substance: LEVOTHYROXINE SODIUM
     Indication: Thyroid disorder
     Dosage: MORNING BEFORE BREAKFAST
     Route: 048
     Dates: start: 2013
  4. HYDROCORTISONE [Concomitant]
     Active Substance: HYDROCORTISONE
     Indication: Thyroid disorder
     Dosage: 5MCG HALF PILL IN MORNING + A WHOLE PILL IN EVENING, EVERY 12 HRS
     Dates: start: 2013
  5. DESMOPRESSIN [Concomitant]
     Active Substance: DESMOPRESSIN
     Dosage: 0.1MG HALF TAB IN MORNING + OTHER HALF IN EVENING
     Dates: start: 2013

REACTIONS (3)
  - Wrong technique in device usage process [Unknown]
  - Device issue [Unknown]
  - Device use issue [Unknown]

NARRATIVE: CASE EVENT DATE: 20220929
